FAERS Safety Report 10891277 (Version 1)
Quarter: 2015Q1

REPORT INFORMATION
  Report Type: Spontaneous
  Country: IE (occurrence: IE)
  Receive Date: 20150306
  Receipt Date: 20150306
  Transmission Date: 20150721
  Serious: Yes (Hospitalization)
  Sender: FDA-Public Use
  Company Number: IE-ASTRAZENECA-2015SE19304

PATIENT
  Age: 59 Year
  Sex: Male

DRUGS (1)
  1. BRILIQUE [Suspect]
     Active Substance: TICAGRELOR
     Route: 048
     Dates: start: 201501

REACTIONS (3)
  - Blood magnesium decreased [Unknown]
  - Electrocardiogram QT prolonged [Unknown]
  - Blood potassium decreased [Unknown]
